FAERS Safety Report 6145041-1 (Version None)
Quarter: 2009Q2

REPORT INFORMATION
  Report Type: 
  Country: None (occurrence: None)
  Receive Date: 20090406
  Receipt Date: 20090325
  Transmission Date: 20091009
  Serious: Yes (Other)
  Sender: FDA-Public Use
  Company Number: US-PFIZER INC-2009188758

PATIENT
  Sex: Male

DRUGS (2)
  1. VIAGRA [Suspect]
  2. LEVITRA [Suspect]

REACTIONS (2)
  - ABDOMINAL PAIN UPPER [None]
  - INTESTINAL OPERATION [None]
